FAERS Safety Report 4437288-7 (Version None)
Quarter: 2004Q3

REPORT INFORMATION
  Report Type: 
  Country: None (occurrence: None)
  Receive Date: 20040726
  Receipt Date: 20040421
  Transmission Date: 20050211
  Serious: Yes (Other)
  Sender: FDA-Public Use
  Company Number: USA040363436

PATIENT
  Age: 79 Year
  Sex: Female

DRUGS (7)
  1. FORTEO [Suspect]
     Indication: OSTEOPOROSIS
     Dates: start: 20040305, end: 20040410
  2. EVISTA [Suspect]
     Indication: FRACTURE
  3. SYNTHROID [Concomitant]
  4. PRAVACHOL [Concomitant]
  5. BUSPAR [Concomitant]
  6. ATENOLOL [Concomitant]
  7. FOSAMAX [Concomitant]

REACTIONS (5)
  - ABNORMAL SENSATION IN EYE [None]
  - HYPERTENSION [None]
  - INJECTION SITE BURNING [None]
  - OEDEMA PERIPHERAL [None]
  - PAIN IN EXTREMITY [None]
